FAERS Safety Report 14813760 (Version 4)
Quarter: 2019Q1

REPORT INFORMATION
  Report Type: Spontaneous
  Country: US (occurrence: US)
  Receive Date: 20180426
  Receipt Date: 20190328
  Transmission Date: 20190417
  Serious: Yes (Other)
  Sender: FDA-Public Use
  Company Number: US-PFIZER INC-2018170600

PATIENT
  Age: 72 Year
  Sex: Female

DRUGS (1)
  1. XELJANZ XR [Suspect]
     Active Substance: TOFACITINIB CITRATE
     Indication: RHEUMATOID ARTHRITIS
     Dosage: 11 MG, 1X/DAY
     Route: 048
     Dates: start: 201506

REACTIONS (6)
  - Deafness [Unknown]
  - Cellulitis [Unknown]
  - Fungal infection [Unknown]
  - Product dose omission [Unknown]
  - Viral infection [Unknown]
  - Rash [Unknown]

NARRATIVE: CASE EVENT DATE: 20180423
